FAERS Safety Report 18481564 (Version 1)
Quarter: 2020Q4

REPORT INFORMATION
  Report Type: Spontaneous
  Country: CN (occurrence: CN)
  Receive Date: 20201109
  Receipt Date: 20201109
  Transmission Date: 20210114
  Serious: Yes (Other)
  Sender: FDA-Public Use
  Company Number: CN-INCYTE CORPORATION-2019IN012134

PATIENT

DRUGS (1)
  1. JAKAVI [Suspect]
     Active Substance: RUXOLITINIB
     Indication: MYELOFIBROSIS
     Dosage: 4 DF(4 IN MORNING AND 4 IN EVENING)
     Route: 048

REACTIONS (4)
  - Proteinuria [Unknown]
  - White blood cell count increased [Unknown]
  - Diarrhoea [Unknown]
  - Haemoglobin increased [Unknown]
